FAERS Safety Report 25213597 (Version 1)
Quarter: 2025Q2

REPORT INFORMATION
  Report Type: Spontaneous
  Country: US (occurrence: US)
  Receive Date: 20250418
  Receipt Date: 20250418
  Transmission Date: 20250716
  Serious: No
  Sender: GLAND PHARMA LTD
  Company Number: US-GLANDPHARMA-US-2025GLNSPO00902

PATIENT

DRUGS (3)
  1. METRONIDAZOLE [Suspect]
     Active Substance: METRONIDAZOLE
     Indication: Drug ineffective for unapproved indication
     Route: 065
  2. MINOCYCLINE [Suspect]
     Active Substance: MINOCYCLINE HYDROCHLORIDE
     Indication: Drug ineffective for unapproved indication
     Route: 065
  3. AZELAIC ACID [Suspect]
     Active Substance: AZELAIC ACID
     Indication: Drug ineffective for unapproved indication
     Route: 065

REACTIONS (2)
  - Acne [Unknown]
  - Drug ineffective for unapproved indication [Unknown]
